FAERS Safety Report 6774024-3 (Version None)
Quarter: 2010Q2

REPORT INFORMATION
  Report Type: 
  Country: None (occurrence: None)
  Receive Date: 20100615
  Receipt Date: 20100615
  Transmission Date: 20101027
  Serious: Yes (Other)
  Sender: FDA-Public Use
  Company Number: None

PATIENT
  Age: 55 Year
  Sex: Female
  Weight: 76.2043 kg

DRUGS (1)
  1. NITROFUR 100MG UNKNOWN [Suspect]
     Indication: URINARY TRACT INFECTION
     Dosage: 100MG BID PO
     Route: 048
     Dates: start: 20100526, end: 20100604

REACTIONS (1)
  - MENISCUS LESION [None]
